FAERS Safety Report 26040121 (Version 1)
Quarter: 2025Q4

REPORT INFORMATION
  Report Type: Spontaneous
  Country: EU (occurrence: EU)
  Receive Date: 20251113
  Receipt Date: 20251113
  Transmission Date: 20260118
  Serious: Yes (Other)
  Sender: AUROBINDO
  Company Number: EU-MINISAL02-1065273

PATIENT
  Age: 9 Year
  Sex: Female
  Weight: 45 kg

DRUGS (1)
  1. PIPERACILLIN SODIUM\TAZOBACTAM SODIUM [Suspect]
     Active Substance: PIPERACILLIN SODIUM\TAZOBACTAM SODIUM
     Indication: Complicated appendicitis
     Dosage: UNK (CONTINUOUS INFUSION OF 3.5 G IN 50 ML AT 8.3 ML/H FROM 07/10 TO 18/
     Route: 042
     Dates: start: 20251007, end: 20251023

REACTIONS (3)
  - Pancreatitis acute [Recovering/Resolving]
  - Vomiting [Recovering/Resolving]
  - Abdominal pain upper [Recovering/Resolving]

NARRATIVE: CASE EVENT DATE: 20251015
